FAERS Safety Report 22201198 (Version 2)
Quarter: 2023Q2

REPORT INFORMATION
  Report Type: Spontaneous
  Country: DE (occurrence: DE)
  Receive Date: 20230412
  Receipt Date: 20230524
  Transmission Date: 20230722
  Serious: Yes (Death, Life-Threatening, Hospitalization, Other)
  Sender: FDA-Public Use
  Company Number: DE-009507513-2304DEU002126

PATIENT
  Sex: Female
  Weight: 65 kg

DRUGS (4)
  1. KEYTRUDA [Suspect]
     Active Substance: PEMBROLIZUMAB
     Indication: Cervix carcinoma
     Dosage: 200 MILLIGRAM, Q3W
     Route: 042
     Dates: start: 20221107, end: 20230130
  2. PACLITAXEL [Concomitant]
     Active Substance: PACLITAXEL
     Dosage: 95 (UNITS NOT REPORTED) Q3W
  3. BEVACIZUMAB [Concomitant]
     Active Substance: BEVACIZUMAB
  4. CARBOPLATIN [Concomitant]
     Active Substance: CARBOPLATIN
     Dosage: AREA UNDER THE CURVE (AUC) 5

REACTIONS (2)
  - Epidermolysis [Recovered/Resolved]
  - Death [Fatal]

NARRATIVE: CASE EVENT DATE: 20230214
